FAERS Safety Report 8012106-9 (Version None)
Quarter: 2011Q4

REPORT INFORMATION
  Report Type: 
  Country: None (occurrence: None)
  Receive Date: 20111228
  Receipt Date: 20111216
  Transmission Date: 20120403
  Serious: Yes (Hospitalization)
  Sender: FDA-Public Use
  Company Number: US-ELI_LILLY_AND_COMPANY-US201112006448

PATIENT
  Sex: Male
  Weight: 113.38 kg

DRUGS (7)
  1. CELEXA [Concomitant]
     Dosage: UNK
  2. BENZTROPINE MESYLATE [Concomitant]
     Dosage: UNK
  3. OLANZAPINE [Suspect]
     Dosage: UNK
     Route: 030
     Dates: start: 20111216
  4. SEROQUEL [Concomitant]
     Dosage: UNK
  5. AMANTADINE HCL [Concomitant]
     Dosage: UNK
  6. ALENDRONATE SODIUM [Concomitant]
     Dosage: UNK
  7. OLANZAPINE [Suspect]
     Indication: SCHIZOPHRENIA
     Dosage: UNK
     Route: 030
     Dates: start: 20110603

REACTIONS (9)
  - ASTHENIA [None]
  - BLOOD PRESSURE INCREASED [None]
  - DEPRESSED LEVEL OF CONSCIOUSNESS [None]
  - DIZZINESS [None]
  - DYSARTHRIA [None]
  - SEDATION [None]
  - CONFUSIONAL STATE [None]
  - DISORIENTATION [None]
  - SOMNOLENCE [None]
